FAERS Safety Report 9345826 (Version 1)
Quarter: 2013Q2

REPORT INFORMATION
  Report Type: Spontaneous
  Country: US (occurrence: US)
  Receive Date: 20130613
  Receipt Date: 20130613
  Transmission Date: 20140414
  Serious: No
  Sender: FDA-Public Use
  Company Number: US-US-EMD SERONO, INC.-7110921

PATIENT
  Sex: Female

DRUGS (2)
  1. REBIF [Suspect]
     Indication: PRODUCT USED FOR UNKNOWN INDICATION
     Route: 058
     Dates: start: 20111122, end: 201203
  2. XANAX [Concomitant]
     Indication: ANXIETY

REACTIONS (11)
  - Dyspnoea [Recovered/Resolved]
  - Palpitations [Recovered/Resolved]
  - Urinary tract infection [Unknown]
  - Dry skin [Unknown]
  - Paraesthesia [Unknown]
  - Hypoaesthesia [Unknown]
  - Reverse tri-iodothyronine increased [Unknown]
  - Fatigue [Unknown]
  - Injection site erythema [Unknown]
  - Injection site pain [Unknown]
  - Rash [Recovered/Resolved]
